FAERS Safety Report 6934900-5 (Version None)
Quarter: 2010Q3

REPORT INFORMATION
  Report Type: 
  Country: None (occurrence: None)
  Receive Date: 20100821
  Receipt Date: 20100807
  Transmission Date: 20110219
  Serious: Yes (Other)
  Sender: FDA-Public Use
  Company Number: PHHY2010HK52698

PATIENT
  Age: 77 Year
  Sex: Female

DRUGS (7)
  1. CERTICAN [Suspect]
     Indication: RENAL TRANSPLANT
     Dosage: 0.5 MG DAILY
     Route: 048
  2. TARCEVA [Suspect]
     Dosage: 100 MG DAILY
     Route: 048
     Dates: start: 20100501
  3. IRESSA [Suspect]
     Dosage: 200 MG DAILY
     Route: 048
  4. CELLCEPT [Concomitant]
     Dosage: 500 MG
  5. PREDNISOLONE [Concomitant]
     Dosage: UNK
  6. DILTIAZEM [Concomitant]
     Dosage: 300 MG
  7. METHYLDOPA [Concomitant]

REACTIONS (2)
  - MUCOSAL INFLAMMATION [None]
  - RASH [None]
